FAERS Safety Report 20883562 (Version 1)
Quarter: 2022Q2

REPORT INFORMATION
  Report Type: Spontaneous
  Country: US (occurrence: None)
  Receive Date: 20220526
  Receipt Date: 20220526
  Transmission Date: 20220721
  Serious: Yes (unspecified)
  Sender: FDA-Public Use
  Company Number: None

PATIENT
  Age: 63 Year
  Sex: Female
  Weight: 90 kg

DRUGS (6)
  1. CASIRIVIMAB\IMDEVIMAB [Suspect]
     Active Substance: CASIRIVIMAB\IMDEVIMAB
     Indication: COVID-19
     Route: 042
     Dates: start: 20211115, end: 20211115
  2. Cozaar 50mg PO by mouth [Concomitant]
  3. Hydrochlothiazide 12,5mg by mouth [Concomitant]
  4. Vitamin C [Concomitant]
  5. VITAMIN D3 [Concomitant]
  6. Vitamin Zinc [Concomitant]

REACTIONS (11)
  - Feeling abnormal [None]
  - Fatigue [None]
  - Somnolence [None]
  - Malaise [None]
  - Headache [None]
  - Dizziness [None]
  - Nausea [None]
  - Palpitations [None]
  - Asthenia [None]
  - Arthralgia [None]
  - Back pain [None]

NARRATIVE: CASE EVENT DATE: 20211115
